FAERS Safety Report 11314772 (Version 1)
Quarter: 2015Q3

REPORT INFORMATION
  Report Type: Spontaneous
  Country: US (occurrence: US)
  Receive Date: 20150727
  Receipt Date: 20150727
  Transmission Date: 20151125
  Serious: No
  Sender: FDA-Public Use
  Company Number: US-GLAXOSMITHKLINE-US2015106453

PATIENT
  Sex: Male

DRUGS (7)
  1. HYDROCHLORTHIAZIDE [Concomitant]
     Active Substance: HYDROCHLOROTHIAZIDE
  2. ASPIRIN (BABY) [Concomitant]
     Active Substance: ASPIRIN
  3. NEXIUM [Concomitant]
     Active Substance: ESOMEPRAZOLE MAGNESIUM
  4. ANORO ELLIPTA [Suspect]
     Active Substance: UMECLIDINIUM BROMIDE\VILANTEROL TRIFENATATE
     Indication: CHRONIC OBSTRUCTIVE PULMONARY DISEASE
     Dosage: 1 PUFF(S), QD
     Route: 055
     Dates: start: 20150624
  5. VALSARTAN. [Concomitant]
     Active Substance: VALSARTAN
  6. PRAVASTATIN [Concomitant]
     Active Substance: PRAVASTATIN\PRAVASTATIN SODIUM
  7. AMLODIPINE [Concomitant]
     Active Substance: AMLODIPINE BESYLATE

REACTIONS (3)
  - Muscle tightness [Not Recovered/Not Resolved]
  - Rheumatic disorder [Recovered/Resolved]
  - Myalgia [Not Recovered/Not Resolved]
